FAERS Safety Report 9702223 (Version 2)
Quarter: 2014Q2

REPORT INFORMATION
  Report Type: Spontaneous
  Country: US (occurrence: US)
  Receive Date: 20131121
  Receipt Date: 20140402
  Transmission Date: 20141212
  Serious: Yes (Hospitalization)
  Sender: FDA-Public Use
  Company Number: US-BAYER-2013-140991

PATIENT
  Age: 21 Year
  Sex: Female
  Weight: 63.49 kg

DRUGS (5)
  1. MIRENA [Suspect]
     Indication: CONTRACEPTION
     Dosage: 20 MCG/24HR, CONT
     Route: 015
     Dates: start: 20110308, end: 20110714
  2. DOXYCYCLINE [Concomitant]
  3. IBUPROFEN [Concomitant]
  4. PERCOCET [Concomitant]
  5. PHENERGAN [Concomitant]

REACTIONS (5)
  - Uterine perforation [None]
  - Injury [None]
  - Pain [None]
  - Emotional distress [None]
  - Scar [None]
